FAERS Safety Report 9813531 (Version 1)
Quarter: 2014Q1

REPORT INFORMATION
  Report Type: Spontaneous
  Country: GB (occurrence: GB)
  Receive Date: 20140113
  Receipt Date: 20140113
  Transmission Date: 20141002
  Serious: Yes (Hospitalization)
  Sender: FDA-Public Use
  Company Number: GB-PFIZER INC-2014005899

PATIENT
  Age: 74 Year
  Sex: Male

DRUGS (7)
  1. AMLODIPINE BESILATE [Suspect]
     Route: 048
  2. PIOGLITAZONE HYDROCHLORIDE [Suspect]
     Dosage: 45 MG, DAILY
     Route: 048
  3. TAMSULOSIN [Concomitant]
     Dosage: 400 UG, 1X/DAY
     Route: 048
  4. METFORMIN [Concomitant]
     Dosage: 850 MG, 2X/DAY
     Route: 048
  5. BIMATOPROST [Concomitant]
     Dosage: 1DF 1X/DAY (100MCG/ ML. 1 DROP AT NIGHT BOTH EYES)
     Route: 031
  6. ATORVASTATIN [Concomitant]
     Dosage: 20MG 1X/DAY (TAKEN AT NIGHT)
     Route: 048
  7. ASPIRIN [Concomitant]
     Dosage: 75 MG, DAILY
     Route: 048

REACTIONS (6)
  - Cardiac failure congestive [Not Recovered/Not Resolved]
  - Hyponatraemia [Unknown]
  - Pleural effusion [Unknown]
  - Aortic stenosis [Unknown]
  - Fluid overload [Unknown]
  - Oedema peripheral [Unknown]
